FAERS Safety Report 6998146-7 (Version None)
Quarter: 2010Q3

REPORT INFORMATION
  Report Type: 
  Country: None (occurrence: None)
  Receive Date: 20100920
  Receipt Date: 20100311
  Transmission Date: 20110219
  Serious: Yes (Other)
  Sender: FDA-Public Use
  Company Number: US-ASTRAZENECA-2009UW20741

PATIENT
  Age: 43 Year
  Sex: Female
  Weight: 80.7 kg

DRUGS (9)
  1. SEROQUEL [Suspect]
     Indication: DEPRESSION
     Dosage: 2.5
     Route: 048
     Dates: start: 20020801, end: 20031201
  2. SEROQUEL [Suspect]
     Dosage: 25 MG, TAKE ONE TABLET BY MOUTH AT BEDTIME AND TAKE ONE-HALF TABLET TWICE A DAY AS NEEDED
     Route: 048
     Dates: start: 20030903, end: 20041202
  3. LITHIUM CARBONATE [Concomitant]
     Dates: start: 20040101
  4. VENLAFAXINE [Concomitant]
     Dates: start: 20040101
  5. RITALIN [Concomitant]
     Dates: start: 20040101
  6. GEMFIBROZIL [Concomitant]
     Dates: start: 20050413
  7. CELEXA [Concomitant]
     Dates: start: 20050413
  8. SIMVASTATIN [Concomitant]
     Dates: start: 20050413
  9. METHYLPHENIDATE HCL [Concomitant]
     Route: 048
     Dates: start: 20050805

REACTIONS (6)
  - BLOOD CHOLESTEROL INCREASED [None]
  - HYPERLIPIDAEMIA [None]
  - KETOACIDOSIS [None]
  - OBESITY [None]
  - PANCREATITIS [None]
  - TYPE 2 DIABETES MELLITUS [None]
